FAERS Safety Report 6836290-5 (Version None)
Quarter: 2010Q3

REPORT INFORMATION
  Report Type: 
  Country: None (occurrence: None)
  Receive Date: 20100713
  Receipt Date: 20100601
  Transmission Date: 20110219
  Serious: No
  Sender: FDA-Public Use
  Company Number: US-TYCO HEALTHCARE/MALLINCKRODT-T201001386

PATIENT

DRUGS (5)
  1. OXYCODONE HCL [Suspect]
     Indication: PAIN
     Dosage: 10 MG Q 4 HOURS
     Dates: start: 20100401
  2. OXYCODONE HCL [Suspect]
     Dosage: 7.5 MG, UNK
  3. OXYCODONE HCL [Suspect]
     Dosage: 5MG
  4. CELEBREX [Concomitant]
     Indication: OSTEOARTHRITIS
     Dosage: UNK, DAILY
  5. CYMBALTA [Concomitant]

REACTIONS (4)
  - DIZZINESS [None]
  - FEELING OF BODY TEMPERATURE CHANGE [None]
  - HYPOAESTHESIA ORAL [None]
  - PSYCHOMOTOR SKILLS IMPAIRED [None]
